FAERS Safety Report 21345813 (Version 1)
Quarter: 2022Q3

REPORT INFORMATION
  Report Type: Report from Study
  Country: JP (occurrence: JP)
  Receive Date: 20220916
  Receipt Date: 20220916
  Transmission Date: 20221027
  Serious: Yes (Hospitalization)
  Sender: FDA-Public Use
  Company Number: JP-NOVARTISPH-NVSC2020JP362850

PATIENT
  Age: 73 Year
  Sex: Female

DRUGS (8)
  1. INVESTIGATIONAL PRODUCT [Suspect]
     Active Substance: INVESTIGATIONAL PRODUCT
     Indication: Adenocarcinoma gastric
     Dosage: 200 MG, Q3W
     Route: 065
     Dates: start: 20201005
  2. PLACEBO [Suspect]
     Active Substance: UNSPECIFIED INGREDIENT
     Indication: Adenocarcinoma gastric
     Dosage: 200 MG, Q3W
     Route: 065
     Dates: start: 20201005
  3. CAPECITABINE [Suspect]
     Active Substance: CAPECITABINE
     Indication: Adenocarcinoma gastric
     Dosage: 1000 MG/M2, 3000 MILLIGRAM, DAY 1-14
     Route: 048
     Dates: start: 20201005, end: 20201013
  4. APREPITANT [Concomitant]
     Active Substance: APREPITANT
     Indication: Prophylaxis of nausea and vomiting
     Dosage: 80 MILLIGRAM, QD
     Route: 048
     Dates: start: 2020
  5. NOVAMIN [Concomitant]
     Indication: Nausea
     Dosage: 5 MG, PRN
     Route: 048
     Dates: start: 20201006
  6. VONOPRAZAN FUMARATE [Concomitant]
     Active Substance: VONOPRAZAN FUMARATE
     Indication: Abdominal discomfort
     Dosage: 20 MG, QD
     Route: 048
     Dates: start: 20200915
  7. SODIUM FERROUS CITRATE [Concomitant]
     Active Substance: SODIUM FERROUS CITRATE
     Indication: Anaemia
     Dosage: 100 MG, BID
     Route: 048
     Dates: start: 20200914, end: 20201013
  8. MAGNESIUM OXIDE [Concomitant]
     Active Substance: MAGNESIUM OXIDE
     Indication: Constipation
     Dosage: 1980 MG, TID
     Route: 048
     Dates: start: 20200918

REACTIONS (1)
  - Enterocolitis [Recovered/Resolved]

NARRATIVE: CASE EVENT DATE: 20201019
